FAERS Safety Report 9085020 (Version 1)
Quarter: 2013Q1

REPORT INFORMATION
  Report Type: Report from Study
  Country: US (occurrence: US)
  Receive Date: 20130131
  Receipt Date: 20130131
  Transmission Date: 20140127
  Serious: No
  Sender: FDA-Public Use
  Company Number: US-ABBOTT-12P-163-0999867-00

PATIENT
  Sex: Male

DRUGS (4)
  1. HUMIRA [Suspect]
     Indication: PSORIATIC ARTHROPATHY
     Dates: start: 20110727, end: 20121014
  2. LIPITOR [Concomitant]
     Indication: BLOOD CHOLESTEROL INCREASED
  3. VITAMIN D NOS [Concomitant]
     Indication: SUPPLEMENTATION THERAPY
  4. VITAMIN E [Concomitant]
     Indication: SUPPLEMENTATION THERAPY

REACTIONS (1)
  - Drug ineffective [Not Recovered/Not Resolved]
